FAERS Safety Report 23515077 (Version 1)
Quarter: 2024Q1

REPORT INFORMATION
  Report Type: Spontaneous
  Country: NL (occurrence: NL)
  Receive Date: 20240212
  Receipt Date: 20240212
  Transmission Date: 20240410
  Serious: Yes (Other)
  Sender: FDA-Public Use
  Company Number: None

PATIENT
  Age: 58 Year
  Sex: Male
  Weight: 105 kg

DRUGS (1)
  1. ALENDRONIC ACID [Suspect]
     Active Substance: ALENDRONIC ACID
     Indication: Osteoporosis
     Dosage: 1 TABLET ONCE A WEEK, / BRAND NAME NOT SPECIFIED
     Route: 065
     Dates: start: 20231001, end: 20231113

REACTIONS (1)
  - Orbital myositis [Recovered/Resolved]
